FAERS Safety Report 8344555-3 (Version None)
Quarter: 2012Q2

REPORT INFORMATION
  Report Type: 
  Country: None (occurrence: None)
  Receive Date: 20120508
  Receipt Date: 20120430
  Transmission Date: 20120825
  Serious: Yes (Other)
  Sender: FDA-Public Use
  Company Number: CA-ROCHE-1064634

PATIENT
  Age: 35 Year
  Sex: Female
  Weight: 104.42 kg

DRUGS (2)
  1. TAMIFLU [Suspect]
     Indication: PRODUCT USED FOR UNKNOWN INDICATION
     Route: 048
  2. EXTRA STRENGTH TYLENOL [Concomitant]
     Route: 065

REACTIONS (7)
  - HALLUCINATION, VISUAL [None]
  - HYPERVIGILANCE [None]
  - SLEEP DISORDER [None]
  - THINKING ABNORMAL [None]
  - PARANOIA [None]
  - HALLUCINATION, AUDITORY [None]
  - PSYCHOTIC DISORDER [None]
